FAERS Safety Report 11447801 (Version 1)
Quarter: 2015Q3

REPORT INFORMATION
  Report Type: Spontaneous
  Country: US (occurrence: US)
  Receive Date: 20150831
  Receipt Date: 20150831
  Transmission Date: 20151125
  Serious: Yes (Disabling)
  Sender: FDA-Public Use
  Company Number: US-ELI_LILLY_AND_COMPANY-US200904003179

PATIENT
  Age: 48 Year
  Sex: Female

DRUGS (1)
  1. CYMBALTA [Suspect]
     Active Substance: DULOXETINE HYDROCHLORIDE
     Indication: BIPOLAR I DISORDER
     Dosage: 60 MG, DAILY (1/D)
     Route: 048

REACTIONS (2)
  - Anxiety [Unknown]
  - Mania [Unknown]

NARRATIVE: CASE EVENT DATE: 200603
